FAERS Safety Report 10555923 (Version 3)
Quarter: 2015Q1

REPORT INFORMATION
  Report Type: Spontaneous
  Country: US (occurrence: US)
  Receive Date: 20141030
  Receipt Date: 20150216
  Transmission Date: 20150720
  Serious: Yes (Other)
  Sender: FDA-Public Use
  Company Number: US-PFIZER INC-2014297194

PATIENT
  Age: 40 Year
  Sex: Female
  Weight: 68 kg

DRUGS (3)
  1. LYRICA [Suspect]
     Active Substance: PREGABALIN
  2. NEURONTIN [Suspect]
     Active Substance: GABAPENTIN
     Indication: BACK PAIN
     Dosage: UNK
  3. NEURONTIN [Suspect]
     Active Substance: GABAPENTIN
     Indication: NECK PAIN

REACTIONS (11)
  - Paraesthesia [Unknown]
  - Neuropathy peripheral [Unknown]
  - Oral discomfort [Unknown]
  - Peripheral swelling [Unknown]
  - Drug ineffective [Unknown]
  - Musculoskeletal disorder [Unknown]
  - Muscle twitching [Unknown]
  - Chronic leukaemia [Unknown]
  - Neuralgia [Unknown]
  - Intervertebral disc protrusion [Unknown]
  - Osteoporosis [Unknown]

NARRATIVE: CASE EVENT DATE: 2002
